FAERS Safety Report 6932847-1 (Version None)
Quarter: 2010Q3

REPORT INFORMATION
  Report Type: 
  Country: None (occurrence: None)
  Receive Date: 20100819
  Receipt Date: 20100809
  Transmission Date: 20110219
  Serious: Yes (Other)
  Sender: FDA-Public Use
  Company Number: US-WATSON-2010-10815

PATIENT
  Sex: Female
  Weight: 79.365 kg

DRUGS (5)
  1. BUPROPION HYDROCHLORIDE XL (WATSON LABORATORIES) [Suspect]
     Indication: DEPRESSION
     Dosage: 150 MG, DAILY
     Route: 048
     Dates: start: 20100701, end: 20100701
  2. BUPROPION HYDROCHLORIDE XL (WATSON LABORATORIES) [Suspect]
     Dosage: UNK
     Route: 048
     Dates: start: 20030101
  3. WELLBUTRIN [Suspect]
     Indication: DEPRESSION
     Dosage: UNK
     Route: 048
     Dates: start: 20030101
  4. SYNTHROID [Concomitant]
     Indication: HYPOTHYROIDISM
     Dosage: 0.05 MG, DAILY
     Route: 048
  5. VALTREX [Concomitant]
     Indication: MOUTH ULCERATION
     Dosage: 1 TABLET DAILY
     Route: 048
     Dates: start: 20040101

REACTIONS (5)
  - BREAST CANCER FEMALE [None]
  - CRYING [None]
  - DRUG INEFFECTIVE [None]
  - FEELING ABNORMAL [None]
  - WITHDRAWAL SYNDROME [None]
